FAERS Safety Report 4663869-1 (Version None)
Quarter: 2005Q2

REPORT INFORMATION
  Report Type: 
  Country: None (occurrence: None)
  Receive Date: 20050516
  Receipt Date: 20050503
  Transmission Date: 20051028
  Serious: Yes (Hospitalization, Other)
  Sender: FDA-Public Use
  Company Number: 2005069640

PATIENT
  Age: 79 Year
  Sex: Male

DRUGS (1)
  1. DILANTIN [Suspect]
     Indication: CONVULSION
     Dosage: ORAL
     Route: 048

REACTIONS (14)
  - ALTERED VISUAL DEPTH PERCEPTION [None]
  - ANTICONVULSANT TOXICITY [None]
  - APHASIA [None]
  - CONDITION AGGRAVATED [None]
  - CONVULSION [None]
  - DEPRESSION [None]
  - DIZZINESS [None]
  - GRAND MAL CONVULSION [None]
  - NAUSEA [None]
  - PARALYSIS [None]
  - PETIT MAL EPILEPSY [None]
  - PNEUMONIA [None]
  - TREMOR [None]
  - WEIGHT DECREASED [None]
